FAERS Safety Report 17309752 (Version 1)
Quarter: 2020Q3

REPORT INFORMATION
  Report Type: Spontaneous
  Country: US (occurrence: US)
  Receive Date: 20200123
  Receipt Date: 20200123
  Transmission Date: 20201104
  Serious: No
  Sender: FDA-Public Use
  Company Number: US-ROCHE-2428709

PATIENT
  Age: 5 Year
  Sex: Male

DRUGS (3)
  1. EMICIZUMAB. [Suspect]
     Active Substance: EMICIZUMAB
     Indication: VON WILLEBRAND^S DISEASE
     Dosage: LOADING DOSE
     Route: 065
  2. EMICIZUMAB. [Suspect]
     Active Substance: EMICIZUMAB
     Route: 065
  3. FACTOR VIIA [Concomitant]
     Active Substance: COAGULATION FACTOR VIIA HUMAN
     Dosage: 90?120 UG/KG PER DOSE
     Route: 065

REACTIONS (3)
  - Off label use [Unknown]
  - Intentional product use issue [Unknown]
  - No adverse event [Unknown]
